FAERS Safety Report 5392571-6 (Version None)
Quarter: 2007Q3

REPORT INFORMATION
  Report Type: 
  Country: None (occurrence: None)
  Receive Date: 20070720
  Receipt Date: 20070711
  Transmission Date: 20080115
  Serious: Yes (Congenital Anomaly)
  Sender: FDA-Public Use
  Company Number: GB-ABBOTT-06P-167-0335144-00

PATIENT
  Sex: Female

DRUGS (1)
  1. VALPROATE SODIUM [Suspect]
     Indication: DRUG EXPOSURE DURING PREGNANCY

REACTIONS (8)
  - ABNORMAL BEHAVIOUR [None]
  - ARTHROPATHY [None]
  - COGNITIVE DISORDER [None]
  - CONGENITAL ANOMALY [None]
  - DISTURBANCE IN SOCIAL BEHAVIOUR [None]
  - EPILEPSY [None]
  - FOETAL ANTICONVULSANT SYNDROME [None]
  - SPEECH DISORDER DEVELOPMENTAL [None]
